FAERS Safety Report 16613240 (Version 1)
Quarter: 2019Q3

REPORT INFORMATION
  Report Type: Spontaneous
  Country: US (occurrence: US)
  Receive Date: 20190722
  Receipt Date: 20190722
  Transmission Date: 20191004
  Serious: Yes (Other)
  Sender: FDA-Public Use
  Company Number: None

PATIENT
  Age: 43 Year
  Sex: Female
  Weight: 112.05 kg

DRUGS (1)
  1. CLOZAPINE. [Suspect]
     Active Substance: CLOZAPINE
     Indication: PSYCHOTIC DISORDER
     Route: 048
     Dates: start: 20190311, end: 20190408

REACTIONS (4)
  - Pleural effusion [None]
  - Hyperhidrosis [None]
  - Chest pain [None]
  - Pericardial effusion [None]

NARRATIVE: CASE EVENT DATE: 20190328
